FAERS Safety Report 16423911 (Version 2)
Quarter: 2019Q3

REPORT INFORMATION
  Report Type: Spontaneous
  Country: DE (occurrence: DE)
  Receive Date: 20190613
  Receipt Date: 20190705
  Transmission Date: 20191004
  Serious: Yes (Other)
  Sender: FDA-Public Use
  Company Number: DE-ASTRAZENECA-2019SE85109

PATIENT
  Age: 73 Year
  Sex: Female

DRUGS (5)
  1. FASLODEX [Suspect]
     Active Substance: FULVESTRANT
     Indication: BREAST CANCER FEMALE
     Route: 030
     Dates: start: 201710, end: 201904
  2. VALSARTAN. [Concomitant]
     Active Substance: VALSARTAN
     Route: 048
  3. L-THYROXIN [Concomitant]
     Active Substance: LEVOTHYROXINE SODIUM
     Indication: AUTOIMMUNE THYROIDITIS
     Dosage: 100UG/INHAL DAILY
     Route: 048
  4. METFORMIN [Concomitant]
     Active Substance: METFORMIN HYDROCHLORIDE
     Route: 048
  5. XGEVA [Concomitant]
     Active Substance: DENOSUMAB
     Indication: BREAST CANCER FEMALE
     Route: 030
     Dates: end: 201904

REACTIONS (3)
  - Burning sensation [Unknown]
  - Muscle necrosis [Recovered/Resolved with Sequelae]
  - Muscle atrophy [Recovered/Resolved with Sequelae]

NARRATIVE: CASE EVENT DATE: 201811
